FAERS Safety Report 4597344-X (Version None)
Quarter: 2005Q1

REPORT INFORMATION
  Report Type: 
  Country: None (occurrence: None)
  Receive Date: 20050303
  Receipt Date: 20041212
  Transmission Date: 20050727
  Serious: Yes (Death)
  Sender: FDA-Public Use
  Company Number: FR-BRISTOL-MYERS SQUIBB COMPANY-12805354

PATIENT
  Age: 78 Year
  Sex: Male

DRUGS (2)
  1. ERBITUX [Suspect]
     Indication: COLORECTAL CANCER
     Dosage: STARTED 14-SEP, ALSO REC'D 02-NOV (2ND DOSE)
     Route: 042
     Dates: start: 20040914
  2. MORPHINE [Suspect]

REACTIONS (4)
  - CONFUSIONAL STATE [None]
  - DEHYDRATION [None]
  - GENERAL PHYSICAL HEALTH DETERIORATION [None]
  - HALLUCINATION [None]
